FAERS Safety Report 8433474-X (Version None)
Quarter: 2012Q2

REPORT INFORMATION
  Report Type: 
  Country: None (occurrence: None)
  Receive Date: 20120613
  Receipt Date: 20120529
  Transmission Date: 20120825
  Serious: No
  Sender: FDA-Public Use
  Company Number: US-ASTRAZENECA-2012SE02965

PATIENT
  Age: 61 Year
  Sex: Male

DRUGS (16)
  1. CRESTOR [Suspect]
     Route: 048
  2. CYMBALTA [Concomitant]
     Indication: PAIN
  3. LISINOPRIL [Concomitant]
  4. DIAZEPAM [Concomitant]
     Indication: MUSCLE SPASMS
  5. FLONASE [Concomitant]
     Indication: MULTIPLE ALLERGIES
  6. LYRICA [Concomitant]
     Indication: PAIN
  7. MIDRIN [Concomitant]
     Indication: MIGRAINE
  8. IMITREX [Concomitant]
     Indication: MIGRAINE
  9. PREVACID [Concomitant]
     Indication: GASTROOESOPHAGEAL REFLUX DISEASE
  10. CRESTOR [Suspect]
     Route: 048
     Dates: start: 20110701
  11. NEURONTIN [Concomitant]
     Indication: PAIN
  12. AMRIX ER [Concomitant]
  13. OXYCODONE/ACETAMINOPHEN [Concomitant]
     Indication: PAIN
  14. AMLODIPINE [Concomitant]
  15. VOLTAREN [Concomitant]
  16. FLORCET [Concomitant]
     Indication: HEADACHE

REACTIONS (4)
  - BRONCHIAL DISORDER [None]
  - NASOPHARYNGITIS [None]
  - BLOOD CHOLESTEROL DECREASED [None]
  - MYALGIA [None]
